FAERS Safety Report 4324764-0 (Version None)
Quarter: 2004Q1

REPORT INFORMATION
  Report Type: 
  Country: None (occurrence: None)
  Receive Date: 20040325
  Receipt Date: 20040325
  Transmission Date: 20041129
  Serious: Yes (Hospitalization)
  Sender: FDA-Public Use
  Company Number: None

PATIENT
  Age: 75 Year
  Sex: Female
  Weight: 67 kg

DRUGS (1)
  1. OMEPRAZOLE [Suspect]
     Indication: DYSPEPSIA
     Dosage: 20 MG 1/DAY ORAL
     Route: 048

REACTIONS (5)
  - ACCIDENTAL EXPOSURE [None]
  - FOREIGN BODY TRAUMA [None]
  - IMPAIRED HEALING [None]
  - INFECTION [None]
  - SCAN ABDOMEN ABNORMAL [None]
